FAERS Safety Report 18581195 (Version 3)
Quarter: 2021Q1

REPORT INFORMATION
  Report Type: Report from Study
  Country: BR (occurrence: BR)
  Receive Date: 20201204
  Receipt Date: 20210205
  Transmission Date: 20210419
  Serious: Yes (Life-Threatening, Other)
  Sender: FDA-Public Use
  Company Number: BR-GILEAD-2020-0496819

PATIENT
  Age: 40 Year
  Sex: Male
  Weight: 120 kg

DRUGS (27)
  1. CIMETIDINE [Concomitant]
     Active Substance: CIMETIDINE
  2. PANTOPRAZOLE [Concomitant]
     Active Substance: PANTOPRAZOLE
     Dosage: 40 MG, QD
     Dates: start: 20200907, end: 20200911
  3. AZITHROMYCIN ANHYDROUS. [Concomitant]
     Active Substance: AZITHROMYCIN ANHYDROUS
     Dosage: 500 MG, QD
     Dates: start: 20200831, end: 20200904
  4. DEXTROCETAMINE [Concomitant]
  5. NOREPINEPHRINE. [Concomitant]
     Active Substance: NOREPINEPHRINE
  6. ERYTHROMYCIN. [Concomitant]
     Active Substance: ERYTHROMYCIN
  7. METHOCLOPRAMIDE [Concomitant]
     Active Substance: METOCLOPRAMIDE HYDROCHLORIDE
     Dosage: 5 MG
     Dates: start: 20200922, end: 20201003
  8. METHYLPREDNISOLONE. [Concomitant]
     Active Substance: METHYLPREDNISOLONE
     Indication: COVID-19
     Dosage: 40 MG
     Dates: start: 20200907
  9. AZITHROMYCIN ANHYDROUS. [Concomitant]
     Active Substance: AZITHROMYCIN ANHYDROUS
     Indication: COVID-19 PNEUMONIA
     Dosage: 500 MG, QD
     Dates: start: 20200907, end: 20200913
  10. ONDANSETRON [Concomitant]
     Active Substance: ONDANSETRON
  11. DIPIRONE [Concomitant]
     Active Substance: METAMIZOLE SODIUM
     Dosage: 2 G
     Dates: start: 20200915, end: 20201003
  12. DOMPERIDONE [Concomitant]
     Active Substance: DOMPERIDONE
  13. LUFTAL [DIMETICONE] [Concomitant]
  14. POTASSIUM PHOSPHATE DIBASIC;POTASSIUM PHOSPHATE MONOBASIC [Concomitant]
  15. LIDOCAINE. [Concomitant]
     Active Substance: LIDOCAINE
  16. FENTANYL. [Concomitant]
     Active Substance: FENTANYL
  17. ENOXAPARIN [Concomitant]
     Active Substance: ENOXAPARIN
     Dosage: 40 MG
     Dates: start: 20200907, end: 20200913
  18. ACEBROPHYLLINE [Concomitant]
     Active Substance: AMBROXOL ACEFYLLINATE
  19. GLYCERIN SUPPOSITORIES [Concomitant]
  20. METHADONE [Concomitant]
     Active Substance: METHADONE HYDROCHLORIDE
  21. SLOW?K [Concomitant]
     Active Substance: POTASSIUM CHLORIDE
  22. CEFTRIAXONE. [Concomitant]
     Active Substance: CEFTRIAXONE
     Indication: COVID-19
     Dosage: 2 G, QD
     Dates: start: 20200907, end: 20200913
  23. HYDROCORTISONE. [Concomitant]
     Active Substance: HYDROCORTISONE
     Indication: COVID-19 PNEUMONIA
     Dosage: 500 MG
     Dates: start: 20190904, end: 20190904
  24. ROCURONIUM [Concomitant]
     Active Substance: ROCURONIUM BROMIDE
  25. REMDESIVIR. [Suspect]
     Active Substance: REMDESIVIR
     Indication: COVID-19 PNEUMONIA
     Dosage: 100 ML, QD
     Route: 042
     Dates: start: 20200908
  26. TOCILIZUMAB. [Suspect]
     Active Substance: TOCILIZUMAB
     Indication: COVID-19 PNEUMONIA
     Dosage: 100 ML
     Route: 042
     Dates: start: 20200908
  27. NEOSTIGMINE. [Concomitant]
     Active Substance: NEOSTIGMINE METHYLSULFATE

REACTIONS (2)
  - Pneumonia [Recovered/Resolved]
  - Urinary tract infection [Recovered/Resolved]

NARRATIVE: CASE EVENT DATE: 20200924
